FAERS Safety Report 25281472 (Version 1)
Quarter: 2025Q2

REPORT INFORMATION
  Report Type: Spontaneous
  Country: US (occurrence: US)
  Receive Date: 20250508
  Receipt Date: 20250508
  Transmission Date: 20250717
  Serious: No
  Sender: ELI LILLY AND COMPANY
  Company Number: US-ELI_LILLY_AND_COMPANY-US202505004444

PATIENT
  Age: 73 Year
  Sex: Female

DRUGS (16)
  1. MOUNJARO [Suspect]
     Active Substance: TIRZEPATIDE
     Indication: Blood glucose increased
     Route: 058
     Dates: start: 20240423
  2. MOUNJARO [Suspect]
     Active Substance: TIRZEPATIDE
     Indication: Blood glucose increased
     Route: 058
     Dates: start: 20240423
  3. MOUNJARO [Suspect]
     Active Substance: TIRZEPATIDE
     Indication: Blood glucose increased
     Route: 058
     Dates: start: 20240423
  4. MOUNJARO [Suspect]
     Active Substance: TIRZEPATIDE
     Indication: Blood glucose increased
     Route: 058
     Dates: start: 20240423
  5. MOUNJARO [Suspect]
     Active Substance: TIRZEPATIDE
     Indication: Blood glucose increased
     Route: 058
  6. MOUNJARO [Suspect]
     Active Substance: TIRZEPATIDE
     Indication: Blood glucose increased
     Route: 058
  7. MOUNJARO [Suspect]
     Active Substance: TIRZEPATIDE
     Indication: Blood glucose increased
     Route: 058
  8. MOUNJARO [Suspect]
     Active Substance: TIRZEPATIDE
     Indication: Blood glucose increased
     Route: 058
  9. MOUNJARO [Suspect]
     Active Substance: TIRZEPATIDE
     Indication: Blood glucose increased
     Route: 058
  10. MOUNJARO [Suspect]
     Active Substance: TIRZEPATIDE
     Indication: Blood glucose increased
     Route: 058
  11. MOUNJARO [Suspect]
     Active Substance: TIRZEPATIDE
     Indication: Blood glucose increased
     Route: 058
  12. MOUNJARO [Suspect]
     Active Substance: TIRZEPATIDE
     Indication: Blood glucose increased
     Route: 058
  13. MOUNJARO [Suspect]
     Active Substance: TIRZEPATIDE
     Indication: Blood glucose increased
     Route: 065
  14. MOUNJARO [Suspect]
     Active Substance: TIRZEPATIDE
     Indication: Blood glucose increased
     Route: 065
  15. MOUNJARO [Suspect]
     Active Substance: TIRZEPATIDE
     Indication: Blood glucose increased
     Route: 065
  16. MOUNJARO [Suspect]
     Active Substance: TIRZEPATIDE
     Indication: Blood glucose increased
     Route: 065

REACTIONS (2)
  - Constipation [Recovered/Resolved]
  - Injection site pain [Recovered/Resolved]

NARRATIVE: CASE EVENT DATE: 20240423
